FAERS Safety Report 8987707 (Version 2)
Quarter: 2013Q1

REPORT INFORMATION
  Report Type: Spontaneous
  Country: FR (occurrence: FR)
  Receive Date: 20121227
  Receipt Date: 20130104
  Transmission Date: 20140127
  Serious: Yes (Hospitalization)
  Sender: FDA-Public Use
  Company Number: PHHY2012FR120125

PATIENT
  Age: 10 Year
  Sex: Female

DRUGS (3)
  1. AMOXICILLIN+CLAVULANATE [Suspect]
     Indication: URINARY TRACT INFECTION
     Route: 048
     Dates: start: 201209, end: 201209
  2. ORELOX [Suspect]
     Indication: BRONCHITIS
     Route: 048
     Dates: start: 201209, end: 201209
  3. BACTRIM [Suspect]
     Indication: URINARY TRACT INFECTION
     Route: 048
     Dates: start: 201209, end: 201209

REACTIONS (16)
  - Polyuria [Unknown]
  - Drug-induced liver injury [Recovering/Resolving]
  - Liver disorder [Recovering/Resolving]
  - Jaundice [Recovering/Resolving]
  - Hyperbilirubinaemia [Recovering/Resolving]
  - Vomiting [Recovering/Resolving]
  - Pyrexia [Recovered/Resolved]
  - Asthenia [Recovering/Resolving]
  - Abdominal pain [Recovered/Resolved]
  - Diarrhoea [Recovering/Resolving]
  - Hyperthermia [Recovering/Resolving]
  - Pruritus [Recovering/Resolving]
  - Weight decreased [Recovering/Resolving]
  - Nausea [Recovered/Resolved]
  - Gallbladder oedema [Recovered/Resolved]
  - Faeces discoloured [Recovering/Resolving]
